FAERS Safety Report 12687324 (Version 1)
Quarter: 2016Q3

REPORT INFORMATION
  Report Type: Spontaneous
  Country: FR (occurrence: FR)
  Receive Date: 20160825
  Receipt Date: 20160825
  Transmission Date: 20161109
  Serious: Yes (Life-Threatening, Hospitalization, Disabling)
  Sender: FDA-Public Use
  Company Number: FR-MYLANLABS-2016M1035258

PATIENT

DRUGS (1)
  1. KETOPROFEN MYLAN [Suspect]
     Active Substance: KETOPROFEN
     Indication: PRODUCT USED FOR UNKNOWN INDICATION
     Dosage: 1 DF, ONCE
     Route: 048
     Dates: start: 20160701, end: 20160701

REACTIONS (7)
  - Anuria [Not Recovered/Not Resolved]
  - Thrombocytopenia [Recovered/Resolved]
  - Stress cardiomyopathy [Recovering/Resolving]
  - Renal cortical necrosis [Not Recovered/Not Resolved]
  - Acute kidney injury [Not Recovered/Not Resolved]
  - Hepatitis acute [Recovered/Resolved]
  - Thrombotic microangiopathy [Not Recovered/Not Resolved]

NARRATIVE: CASE EVENT DATE: 20160703
